FAERS Safety Report 5873065-8 (Version None)
Quarter: 2008Q3

REPORT INFORMATION
  Report Type: 
  Country: None (occurrence: None)
  Receive Date: 20080903
  Receipt Date: 20080821
  Transmission Date: 20090109
  Serious: Yes (Hospitalization)
  Sender: FDA-Public Use
  Company Number: 2008BI020109

PATIENT
  Age: 45 Year
  Sex: Female

DRUGS (1)
  1. AVONEX [Suspect]
     Indication: MULTIPLE SCLEROSIS
     Dosage: 30 UG; QW; IM
     Route: 030
     Dates: start: 20070415

REACTIONS (5)
  - CONDITION AGGRAVATED [None]
  - DIABETES MELLITUS [None]
  - DYSPNOEA [None]
  - MULTIPLE SCLEROSIS [None]
  - PAIN [None]
